FAERS Safety Report 6072542-7 (Version None)
Quarter: 2009Q1

REPORT INFORMATION
  Report Type: 
  Country: None (occurrence: None)
  Receive Date: 20090210
  Receipt Date: 20090203
  Transmission Date: 20090719
  Serious: Yes (Other)
  Sender: FDA-Public Use
  Company Number: US-AVENTIS-200910885US

PATIENT
  Sex: Female
  Weight: 74.39 kg

DRUGS (3)
  1. LANTUS [Suspect]
     Dosage: DOSE: 40-50
     Route: 058
  2. LANTUS [Suspect]
     Route: 058
  3. SOMETIMES ^R^ [Concomitant]
     Dosage: DOSE: OCCASIONALLY 10 UNITS

REACTIONS (1)
  - WEIGHT DECREASED [None]
